FAERS Safety Report 6554645-3 (Version None)
Quarter: 2010Q1

REPORT INFORMATION
  Report Type: 
  Country: None (occurrence: None)
  Receive Date: 20100127
  Receipt Date: 20100115
  Transmission Date: 20100710
  Serious: Yes (Hospitalization)
  Sender: FDA-Public Use
  Company Number: FR-PFIZER INC-2010006229

PATIENT
  Age: 75 Year
  Sex: Male
  Weight: 61 kg

DRUGS (13)
  1. SUTENT [Suspect]
     Dosage: 37.5 MG, DAILY
     Dates: start: 20091130, end: 20100112
  2. SOLUPRED [Concomitant]
     Indication: METASTASES TO CENTRAL NERVOUS SYSTEM
     Dosage: 20 MG, 2X/DAY
     Route: 048
     Dates: start: 20091124, end: 20091221
  3. SOLUPRED [Concomitant]
     Dosage: 20 MG, 2X/DAY
     Route: 048
     Dates: start: 20091222, end: 20091225
  4. SOLUPRED [Concomitant]
     Dosage: 20 MG, UNK
     Route: 048
     Dates: start: 20091226, end: 20100112
  5. DEPAKENE [Concomitant]
     Indication: METASTASES TO CENTRAL NERVOUS SYSTEM
     Dosage: 500 MG, DAILY
     Route: 048
     Dates: start: 20091101
  6. DEPAKENE [Concomitant]
     Dosage: 200 MG, 2X/DAY
     Route: 048
     Dates: start: 20091124, end: 20091203
  7. DEPAKENE [Concomitant]
     Dosage: 1000 MG, UNK
     Route: 048
     Dates: start: 20100113
  8. DEPAKINE CHRONO [Concomitant]
     Indication: METASTASES TO CENTRAL NERVOUS SYSTEM
     Dosage: UNK
     Route: 048
     Dates: start: 20091209, end: 20100112
  9. DI-ANTALVIC [Concomitant]
     Indication: PAIN
     Dosage: 4 TO 6 DF/DAILY, AS NEEDED
     Route: 048
     Dates: start: 20091124
  10. NEXIUM [Concomitant]
     Dosage: 20 MG, DAILY
     Route: 048
     Dates: start: 20091124
  11. NEXIUM [Concomitant]
     Dosage: 40 MG, UNK
     Route: 048
     Dates: end: 20100112
  12. NEXIUM [Concomitant]
     Dosage: UNK
     Route: 042
     Dates: start: 20100113
  13. STILNOX [Concomitant]
     Indication: INSOMNIA
     Dosage: UNK
     Route: 048
     Dates: start: 20091124

REACTIONS (2)
  - EPILEPSY [None]
  - GENERAL PHYSICAL HEALTH DETERIORATION [None]
